FAERS Safety Report 7531530-1 (Version None)
Quarter: 2011Q2

REPORT INFORMATION
  Report Type: 
  Country: None (occurrence: None)
  Receive Date: 20110608
  Receipt Date: 20110530
  Transmission Date: 20111010
  Serious: Yes (Death, Life-Threatening)
  Sender: FDA-Public Use
  Company Number: JP-AMGEN-JPNCT2011017033

PATIENT
  Age: 66 Year
  Sex: Male
  Weight: 54 kg

DRUGS (6)
  1. LEUCOVORIN CALCIUM [Concomitant]
     Indication: COLORECTAL CANCER
     Dosage: UNK
     Route: 041
     Dates: start: 20100128
  2. PANITUMUMAB [Suspect]
     Indication: COLORECTAL CANCER
     Dosage: 350 MG, Q2WK
     Route: 041
     Dates: start: 20110322, end: 20110322
  3. OXALIPLATIN [Concomitant]
     Indication: COLORECTAL CANCER
     Dosage: UNK UNK, Q2WK
     Route: 041
     Dates: start: 20100128
  4. FLUOROURACIL [Concomitant]
     Route: 041
     Dates: start: 20110322
  5. BEVACIZUMAB [Concomitant]
     Indication: COLORECTAL CANCER
     Dosage: UNK
     Route: 041
     Dates: start: 20100128
  6. FLUOROURACIL [Concomitant]
     Indication: COLORECTAL CANCER
     Dosage: UNK
     Route: 041
     Dates: start: 20100128

REACTIONS (2)
  - INFUSION RELATED REACTION [None]
  - INTERSTITIAL LUNG DISEASE [None]
